FAERS Safety Report 5927644-X (Version None)
Quarter: 2008Q4

REPORT INFORMATION
  Report Type: 
  Country: None (occurrence: None)
  Receive Date: 20081021
  Receipt Date: 20081021
  Transmission Date: 20090506
  Serious: Yes (Hospitalization)
  Sender: FDA-Public Use
  Company Number: None

PATIENT
  Age: 60 Year
  Sex: Female
  Weight: 62 kg

DRUGS (17)
  1. WARFARIN SODIUM [Suspect]
     Indication: ATRIAL FIBRILLATION
     Dosage: 12 MG DAILY PO
     Route: 048
  2. FERROUS SULFATE [Concomitant]
  3. ZEMPLAR [Concomitant]
  4. SLIDING SCALE INSULIN [Concomitant]
  5. ASPIRIN [Concomitant]
  6. ATORVASTATIN [Concomitant]
  7. DOCUSATE CALCIUM [Concomitant]
  8. EPOETIN ALFA [Concomitant]
  9. METOCLOPRAMIDE [Concomitant]
  10. OMEPRAZOLE [Concomitant]
  11. NEPHROVITE [Concomitant]
  12. MINOXIDIL [Concomitant]
  13. CARBAMAZEPINE [Concomitant]
  14. CINACALET [Concomitant]
  15. SEVELAMER [Concomitant]
  16. VALSARTAN [Concomitant]
  17. AMLODIPINE [Concomitant]

REACTIONS (4)
  - ANAEMIA [None]
  - ASTHENIA [None]
  - INTERNATIONAL NORMALISED RATIO INCREASED [None]
  - RECTAL HAEMORRHAGE [None]
